FAERS Safety Report 20746065 (Version 2)
Quarter: 2022Q2

REPORT INFORMATION
  Report Type: Spontaneous
  Country: TW (occurrence: TW)
  Receive Date: 20220425
  Receipt Date: 20220601
  Transmission Date: 20220720
  Serious: No
  Sender: FDA-Public Use
  Company Number: TW-PFIZER INC-202200496140

PATIENT
  Age: 11 Year
  Sex: Female

DRUGS (2)
  1. GENOTROPIN [Suspect]
     Active Substance: SOMATROPIN
     Indication: Growth hormone deficiency
     Dosage: 3.2 IU, 1X/DAY (QD)
     Route: 058
     Dates: start: 20210130
  2. GENOTROPIN [Suspect]
     Active Substance: SOMATROPIN
     Dosage: 3.3 IU, 1X/DAY (QD)
     Route: 058

REACTIONS (4)
  - Intentional dose omission [Unknown]
  - Device leakage [Unknown]
  - Device use issue [Unknown]
  - Device breakage [Unknown]
